FAERS Safety Report 14506099 (Version 1)
Quarter: 2018Q1

REPORT INFORMATION
  Report Type: Spontaneous
  Country: ES (occurrence: ES)
  Receive Date: 20180208
  Receipt Date: 20180208
  Transmission Date: 20180509
  Serious: Yes (Death, Hospitalization, Other)
  Sender: FDA-Public Use
  Company Number: ES-ALLERGAN-1805918US

PATIENT
  Age: 92 Year
  Sex: Female

DRUGS (10)
  1. ZOLPIDEM [Suspect]
     Active Substance: ZOLPIDEM\ZOLPIDEM TARTRATE
     Indication: SUICIDE ATTEMPT
     Dosage: 70 MG, UNK
     Route: 048
     Dates: start: 20170611, end: 20170611
  2. ALPRAZOLAM. [Suspect]
     Active Substance: ALPRAZOLAM
     Indication: SUICIDE ATTEMPT
     Dosage: 7 MG, UNK
     Route: 048
     Dates: start: 20170611, end: 20170611
  3. RAMIPRIL. [Suspect]
     Active Substance: RAMIPRIL
     Indication: SUICIDE ATTEMPT
     Dosage: 17.5 MG, UNK
     Route: 048
     Dates: start: 20170611, end: 20170611
  4. CITALOPRAM HYDROBROMIDE - BP [Suspect]
     Active Substance: CITALOPRAM HYDROBROMIDE
     Indication: SUICIDE ATTEMPT
     Dosage: 140 MG, UNK
     Route: 048
     Dates: start: 20170611, end: 20170611
  5. PARACETAMOL [Suspect]
     Active Substance: ACETAMINOPHEN
     Indication: SUICIDE ATTEMPT
     Dosage: 21 G, UNK
     Route: 048
     Dates: start: 20170611, end: 20170611
  6. SIMVASTATINA [Suspect]
     Active Substance: SIMVASTATIN
     Indication: SUICIDE ATTEMPT
     Dosage: 140 MG, UNK
     Route: 048
     Dates: start: 20170611, end: 20170611
  7. METFORMINA [Suspect]
     Active Substance: METFORMIN HYDROCHLORIDE
     Indication: SUICIDE ATTEMPT
     Dosage: 18 G, UNK
     Route: 048
     Dates: start: 20170611, end: 20170611
  8. OLANZAPINA [Suspect]
     Active Substance: OLANZAPINE
     Indication: SUICIDE ATTEMPT
     Dosage: 17.5 MG, UNK
     Route: 048
     Dates: start: 20170611, end: 20170611
  9. PREGABALINA [Suspect]
     Active Substance: PREGABALIN
     Indication: SUICIDE ATTEMPT
     Dosage: 1050 MG, UNK
     Route: 048
     Dates: start: 20170611, end: 20170611
  10. OMEPRAZOL [Suspect]
     Active Substance: OMEPRAZOLE
     Indication: SUICIDE ATTEMPT
     Dosage: 140 MG, UNK
     Route: 048
     Dates: start: 20170611, end: 20170611

REACTIONS (3)
  - Off label use [Fatal]
  - Intentional overdose [Fatal]
  - Completed suicide [Fatal]

NARRATIVE: CASE EVENT DATE: 20170611
